FAERS Safety Report 9346050 (Version 3)
Quarter: 2013Q4

REPORT INFORMATION
  Report Type: Report from Study
  Country: US (occurrence: US)
  Receive Date: 20130613
  Receipt Date: 20131008
  Transmission Date: 20140711
  Serious: Yes (Hospitalization, Other)
  Sender: FDA-Public Use
  Company Number: US-NAPPMUNDI-USA-2013-0103302

PATIENT
  Sex: Male

DRUGS (4)
  1. OXYCONTIN (NDA 22-272) [Suspect]
     Indication: RADICULITIS BRACHIAL
     Dosage: 480 MG, Q12H
     Route: 048
  2. OXYCONTIN (NDA 22-272) [Suspect]
     Indication: NECK PAIN
  3. OXYCONTIN (NDA 22-272) [Suspect]
     Indication: OSTEOARTHRITIS
  4. OXYCONTIN (NDA 22-272) [Suspect]
     Indication: CERVICOBRACHIAL SYNDROME

REACTIONS (4)
  - Cholecystitis [Unknown]
  - Gallbladder disorder [Unknown]
  - Cholelithiasis [Recovered/Resolved]
  - Gallbladder operation [Recovered/Resolved]
